FAERS Safety Report 23821863 (Version 1)
Quarter: 2024Q2

REPORT INFORMATION
  Report Type: Report from Study
  Country: CA (occurrence: CA)
  Receive Date: 20240506
  Receipt Date: 20240506
  Transmission Date: 20240716
  Serious: Yes (Other)
  Sender: FDA-Public Use
  Company Number: CA-002147023-NVSC2022CA184871

PATIENT
  Sex: Male

DRUGS (2)
  1. HYRIMOZ [Suspect]
     Active Substance: ADALIMUMAB-ADAZ
     Indication: Crohn^s disease
     Dosage: 160 MG
     Route: 058
     Dates: start: 20220809
  2. HYRIMOZ [Suspect]
     Active Substance: ADALIMUMAB-ADAZ
     Dosage: 40 MG, Q2W
     Route: 058

REACTIONS (10)
  - Rectal ulcer [Unknown]
  - Diarrhoea [Unknown]
  - Aphthous ulcer [Unknown]
  - Fatigue [Unknown]
  - Pain in extremity [Unknown]
  - Abdominal pain lower [Unknown]
  - Abdominal pain [Unknown]
  - Arthralgia [Unknown]
  - General physical health deterioration [Unknown]
  - Product storage error [Unknown]
